FAERS Safety Report 10184455 (Version 2)
Quarter: 2015Q2

REPORT INFORMATION
  Report Type: Report from Study
  Country: FR (occurrence: FR)
  Receive Date: 20140521
  Receipt Date: 20150424
  Transmission Date: 20150821
  Serious: Yes (Hospitalization)
  Sender: FDA-Public Use
  Company Number: FR-ROCHE-1403054

PATIENT
  Sex: Female

DRUGS (8)
  1. HYDROXYCHLOROQUINE [Concomitant]
     Active Substance: HYDROXYCHLOROQUINE
  2. CORTANCYL [Concomitant]
     Active Substance: PREDNISONE
  3. RITUXIMAB [Suspect]
     Active Substance: RITUXIMAB
     Indication: RHEUMATOID ARTHRITIS
     Dosage: DAY 1 AND DAY 15
     Route: 042
     Dates: start: 20061130
  4. SALAZOPYRINE [Concomitant]
     Active Substance: SULFASALAZINE
  5. HUMIRA [Concomitant]
     Active Substance: ADALIMUMAB
  6. METHOTREXATE [Concomitant]
     Active Substance: METHOTREXATE
  7. ARAVA [Concomitant]
     Active Substance: LEFLUNOMIDE
  8. ENBREL [Concomitant]
     Active Substance: ETANERCEPT

REACTIONS (11)
  - Arthritis infective [Recovered/Resolved]
  - Hypoacusis [Unknown]
  - Headache [Unknown]
  - Femur fracture [Recovered/Resolved]
  - Toxic skin eruption [Recovering/Resolving]
  - Tooth extraction [Recovered/Resolved]
  - Sinusitis [Recovered/Resolved]
  - Ear infection [Recovered/Resolved]
  - Lymphopenia [Unknown]
  - Nasal polyps [Recovered/Resolved]
  - Dental care [Recovered/Resolved]

NARRATIVE: CASE EVENT DATE: 20070613
